FAERS Safety Report 23263531 (Version 4)
Quarter: 2024Q4

REPORT INFORMATION
  Report Type: Spontaneous
  Country: US (occurrence: US)
  Receive Date: 20231205
  Receipt Date: 20241122
  Transmission Date: 20250115
  Serious: No
  Sender: INSUD PHARMA
  Company Number: US-INSUD PHARMA-2311US08415

PATIENT

DRUGS (1)
  1. CLOBETASOL [Suspect]
     Active Substance: CLOBETASOL
     Indication: Dermatitis atopic
     Dosage: 1 GRAM, APPLIED M-F (DAILY FREQUENCY UNKNOWN), THEN OFF WEEKENDS; USED FOR 4.5 DAYS
     Route: 061
     Dates: start: 202311, end: 202311

REACTIONS (7)
  - Muscle atrophy [Not Recovered/Not Resolved]
  - Skin wrinkling [Not Recovered/Not Resolved]
  - Skin striae [Not Recovered/Not Resolved]
  - Application site reaction [Not Recovered/Not Resolved]
  - Therapeutic product effect incomplete [Unknown]
  - Product prescribing issue [Unknown]
  - Incorrect product administration duration [Unknown]

NARRATIVE: CASE EVENT DATE: 20231101
